FAERS Safety Report 9444019 (Version 4)
Quarter: 2013Q3

REPORT INFORMATION
  Report Type: Spontaneous
  Country: US (occurrence: US)
  Receive Date: 20130807
  Receipt Date: 20130918
  Transmission Date: 20140515
  Serious: Yes (Death, Hospitalization, Other)
  Sender: FDA-Public Use
  Company Number: US-009507513-1308USA001532

PATIENT
  Age: 73 Year
  Sex: Female

DRUGS (3)
  1. JANUVIA [Suspect]
     Indication: DIABETES MELLITUS
     Dosage: 100 MG, QD
     Route: 048
     Dates: start: 20070524
  2. PRANDIN (DEFLAZACORT) [Concomitant]
  3. METOPROLOL [Concomitant]

REACTIONS (2)
  - Pancreatic carcinoma [Fatal]
  - Surgery [Unknown]
